FAERS Safety Report 19804441 (Version 1)
Quarter: 2021Q3

REPORT INFORMATION
  Report Type: Spontaneous
  Country: US (occurrence: US)
  Receive Date: 20210908
  Receipt Date: 20210908
  Transmission Date: 20211014
  Serious: No
  Sender: FDA-Public Use
  Company Number: US-FARMAPROD-202106-0925

PATIENT
  Age: 62 Year
  Sex: Female

DRUGS (5)
  1. PREDNISOLONE. [Concomitant]
     Active Substance: PREDNISOLONE
     Dosage: 15MG/5 ML
  2. OXERVATE [Suspect]
     Active Substance: CENEGERMIN-BKBJ
     Indication: NEUROTROPHIC KERATOPATHY
     Route: 047
     Dates: start: 20210612
  3. LATANOPROST. [Concomitant]
     Active Substance: LATANOPROST
  4. SYSTANE (HYPROMELLOSE 2910 (4000 MPA.S)) [Concomitant]
     Active Substance: HYPROMELLOSE 2910 (4000 MPA.S)
     Dosage: 0.3%?0.4%
  5. CIPROFLOXACIN HCL [Concomitant]
     Active Substance: CIPROFLOXACIN HYDROCHLORIDE

REACTIONS (6)
  - Photophobia [Unknown]
  - Eye irritation [Unknown]
  - Ocular hyperaemia [Unknown]
  - Eye pain [Unknown]
  - Lacrimation increased [Unknown]
  - Eye swelling [Unknown]

NARRATIVE: CASE EVENT DATE: 20210612
